FAERS Safety Report 9312099 (Version 1)
Quarter: 2013Q1

REPORT INFORMATION
  Report Type: Spontaneous
  Country: FR (occurrence: None)
  Receive Date: 20130128
  Receipt Date: 20130128
  Transmission Date: 20140127
  Serious: Yes (Hospitalization)
  Sender: FDA-Public Use
  Company Number: FR-010232

PATIENT
  Age: 6 Year
  Sex: Female
  Weight: 25.3 kg

DRUGS (1)
  1. DESMOPRESSIN [Suspect]
     Indication: ENURESIS
     Dosage: AT BEDTIME
     Route: 048
     Dates: start: 20121105, end: 20121119

REACTIONS (2)
  - Erythema [None]
  - Pruritus [None]
